FAERS Safety Report 9271856 (Version 1)
Quarter: 2013Q2

REPORT INFORMATION
  Report Type: Spontaneous
  Country: US (occurrence: US)
  Receive Date: 20130506
  Receipt Date: 20130506
  Transmission Date: 20140414
  Serious: No
  Sender: FDA-Public Use
  Company Number: US-BAYER-2013-055981

PATIENT
  Sex: 0

DRUGS (6)
  1. ALEVE CAPLET [Suspect]
     Indication: BACK PAIN
  2. ALEVE CAPLET [Suspect]
     Indication: PAIN IN EXTREMITY
  3. BAYER EXTRA STRENGTH BACK + BODY PAIN [Suspect]
     Indication: BACK PAIN
  4. BAYER EXTRA STRENGTH BACK + BODY PAIN [Suspect]
     Indication: PAIN IN EXTREMITY
  5. IBUPROFEN [Concomitant]
     Indication: BACK PAIN
  6. IBUPROFEN [Concomitant]
     Indication: PAIN IN EXTREMITY

REACTIONS (1)
  - Drug ineffective [None]
